FAERS Safety Report 5400522-0 (Version None)
Quarter: 2007Q3

REPORT INFORMATION
  Report Type: 
  Country: None (occurrence: None)
  Receive Date: 20070730
  Receipt Date: 20070531
  Transmission Date: 20080115
  Serious: Yes (Other)
  Sender: FDA-Public Use
  Company Number: US-PURDUE-USA_2007_0028178

PATIENT
  Sex: Male

DRUGS (5)
  1. OXYCONTIN [Suspect]
     Indication: BACK PAIN
     Dosage: 40 MCG, BID
     Dates: start: 19920101
  2. DARVOCET [Concomitant]
  3. VICODIN [Concomitant]
  4. NAPROSYN [Concomitant]
  5. ALCOHOL [Concomitant]

REACTIONS (10)
  - AGGRESSION [None]
  - ALCOHOL USE [None]
  - ARTHRITIS [None]
  - BACK PAIN [None]
  - DEPRESSION [None]
  - DRUG DEPENDENCE [None]
  - DRUG INEFFECTIVE [None]
  - MOOD ALTERED [None]
  - PAIN [None]
  - SURGERY [None]
